FAERS Safety Report 6681385-2 (Version None)
Quarter: 2010Q2

REPORT INFORMATION
  Report Type: 
  Country: None (occurrence: None)
  Receive Date: 20100414
  Receipt Date: 20100408
  Transmission Date: 20101027
  Serious: Yes (Life-Threatening)
  Sender: FDA-Public Use
  Company Number: A0854835A

PATIENT
  Age: 68 Year
  Sex: Male

DRUGS (1)
  1. PAZOPANIB [Suspect]
     Indication: PROSTATE CANCER
     Dosage: 800MG PER DAY
     Route: 048
     Dates: start: 20091007

REACTIONS (2)
  - DYSPNOEA EXERTIONAL [None]
  - PULMONARY EMBOLISM [None]
